FAERS Safety Report 9137956 (Version 1)
Quarter: 2013Q1

REPORT INFORMATION
  Report Type: Spontaneous
  Country: BR (occurrence: BR)
  Receive Date: 20130304
  Receipt Date: 20130304
  Transmission Date: 20140127
  Serious: Yes (Other)
  Sender: FDA-Public Use
  Company Number: BR-ELI_LILLY_AND_COMPANY-BR201302006679

PATIENT
  Sex: Female
  Weight: 45 kg

DRUGS (2)
  1. FORTEO [Suspect]
     Indication: OSTEOPOROSIS
     Dosage: UNK, QD
     Dates: start: 2001
  2. PROTUSS [Concomitant]
     Dosage: UNK, QD

REACTIONS (19)
  - Femur fracture [Unknown]
  - Fall [Unknown]
  - Sjogren^s syndrome [Unknown]
  - Thoracic vertebral fracture [Unknown]
  - Lower respiratory tract inflammation [Unknown]
  - Gastrointestinal disorder [Recovered/Resolved]
  - Gastrointestinal infection [Recovered/Resolved]
  - Weight decreased [Recovered/Resolved]
  - Hypotonia [Unknown]
  - Fatigue [Unknown]
  - Insomnia [Unknown]
  - Decreased appetite [Unknown]
  - Malaise [Unknown]
  - Feeling abnormal [Unknown]
  - Fracture pain [Not Recovered/Not Resolved]
  - Incorrect drug administration duration [Not Recovered/Not Resolved]
  - Back pain [Not Recovered/Not Resolved]
  - Musculoskeletal pain [Not Recovered/Not Resolved]
  - Pain in extremity [Not Recovered/Not Resolved]
